FAERS Safety Report 7084270-X (Version None)
Quarter: 2010Q4

REPORT INFORMATION
  Report Type: 
  Country: None (occurrence: None)
  Receive Date: 20101104
  Receipt Date: 20101028
  Transmission Date: 20110411
  Serious: Yes (Other)
  Sender: FDA-Public Use
  Company Number: JP-PFIZER INC-2010123803

PATIENT
  Age: 77 Year
  Sex: Female

DRUGS (2)
  1. AZULFIDINE [Suspect]
     Indication: RHEUMATOID ARTHRITIS
     Dosage: 500 MG/DAY
     Route: 048
     Dates: start: 20100803, end: 20100816
  2. AZULFIDINE [Suspect]
     Dosage: 1000MG/DAY
     Route: 048
     Dates: start: 20100817, end: 20100928

REACTIONS (1)
  - DERMATITIS EXFOLIATIVE [None]
